FAERS Safety Report 22282444 (Version 1)
Quarter: 2023Q2

REPORT INFORMATION
  Report Type: Other
  Country: CA (occurrence: None)
  Receive Date: 20230504
  Receipt Date: 20230504
  Transmission Date: 20230721
  Serious: Yes (Other)
  Sender: FDA-Public Use
  Company Number: CA-ROCHE-3340653

PATIENT
  Age: 58 Year
  Sex: Male

DRUGS (1)
  1. VABYSMO [Suspect]
     Active Substance: FARICIMAB-SVOA
     Indication: Diabetic retinal oedema
     Route: 050
     Dates: start: 20230419

REACTIONS (8)
  - Blindness [Unknown]
  - Eye haemorrhage [Unknown]
  - Eye contusion [Unknown]
  - Abnormal sensation in eye [Unknown]
  - Foreign body sensation in eyes [Unknown]
  - Muscle twitching [Unknown]
  - Contusion [Unknown]
  - Eye irritation [Unknown]

NARRATIVE: CASE EVENT DATE: 20230419
